FAERS Safety Report 9298636 (Version 2)
Quarter: 2013Q2

REPORT INFORMATION
  Report Type: Spontaneous
  Country: US (occurrence: US)
  Receive Date: 20130520
  Receipt Date: 20130619
  Transmission Date: 20140414
  Serious: Yes (Hospitalization)
  Sender: FDA-Public Use
  Company Number: US-GILEAD-2013-0075313

PATIENT
  Age: 85 Year
  Sex: Female

DRUGS (2)
  1. LETAIRIS [Suspect]
     Indication: PRODUCT USED FOR UNKNOWN INDICATION
     Dosage: 5 MG, UNK
     Dates: start: 20090218
  2. WARFARIN [Concomitant]

REACTIONS (6)
  - Syncope [Unknown]
  - Unevaluable event [Unknown]
  - Oedema [Unknown]
  - Dizziness [Unknown]
  - Wheezing [Unknown]
  - Cough [Unknown]
